FAERS Safety Report 5635519-9 (Version None)
Quarter: 2008Q1

REPORT INFORMATION
  Report Type: 
  Country: None (occurrence: None)
  Receive Date: 20080222
  Receipt Date: 20080215
  Transmission Date: 20080703
  Serious: Yes (Hospitalization)
  Sender: FDA-Public Use
  Company Number: DE-PFIZER INC-2008014565

PATIENT
  Age: 69 Year
  Sex: Male
  Weight: 85 kg

DRUGS (1)
  1. GENOTROPIN [Suspect]
     Indication: GROWTH HORMONE DEFICIENCY
     Dosage: DAILY DOSE:.2MG-FREQ:DAILY
     Route: 058

REACTIONS (3)
  - EXPIRED DRUG ADMINISTERED [None]
  - GENERAL PHYSICAL HEALTH DETERIORATION [None]
  - QUALITY OF LIFE DECREASED [None]
